FAERS Safety Report 4447950-8 (Version None)
Quarter: 2004Q3

REPORT INFORMATION
  Report Type: 
  Country: None (occurrence: None)
  Receive Date: 20040818
  Receipt Date: 20031208
  Transmission Date: 20050211
  Serious: No
  Sender: FDA-Public Use
  Company Number: 2003UW16197

PATIENT
  Age: 16 Year
  Sex: Female

DRUGS (1)
  1. CEFOTAN [Suspect]
     Dates: start: 20031207

REACTIONS (1)
  - ANAPHYLACTIC REACTION [None]
